FAERS Safety Report 22892312 (Version 2)
Quarter: 2025Q2

REPORT INFORMATION
  Report Type: Spontaneous
  Country: DE (occurrence: DE)
  Receive Date: 20230901
  Receipt Date: 20250625
  Transmission Date: 20250716
  Serious: Yes (Hospitalization, Other)
  Sender: NOVARTIS
  Company Number: None

PATIENT
  Age: 63 Year
  Sex: Female
  Weight: 77 kg

DRUGS (1)
  1. LEQVIO [Suspect]
     Active Substance: INCLISIRAN SODIUM
     Indication: Low density lipoprotein increased
     Route: 058
     Dates: start: 20230524, end: 202402

REACTIONS (9)
  - Multiple sclerosis relapse [Unknown]
  - Arthralgia [Unknown]
  - Facial paresis [Unknown]
  - Gait disturbance [Unknown]
  - Dry mouth [Unknown]
  - Myalgia [Unknown]
  - Discomfort [Unknown]
  - Visual impairment [Unknown]
  - Multiple sclerosis [Recovered/Resolved]

NARRATIVE: CASE EVENT DATE: 20230524
